FAERS Safety Report 9355265 (Version 1)
Quarter: 2013Q2

REPORT INFORMATION
  Report Type: Spontaneous
  Country: FR (occurrence: FR)
  Receive Date: 20130619
  Receipt Date: 20130619
  Transmission Date: 20140414
  Serious: Yes (Hospitalization)
  Sender: FDA-Public Use
  Company Number: FR-SANOFI-AVENTIS-2013SA060721

PATIENT
  Age: 95 Year
  Sex: Female

DRUGS (17)
  1. IKOREL [Suspect]
     Indication: PRODUCT USED FOR UNKNOWN INDICATION
     Route: 048
     Dates: end: 20130304
  2. LASILIX [Suspect]
     Indication: PRODUCT USED FOR UNKNOWN INDICATION
     Route: 048
     Dates: end: 20130303
  3. LASILIX [Suspect]
     Indication: PRODUCT USED FOR UNKNOWN INDICATION
     Route: 048
  4. TEMESTA [Suspect]
     Indication: PRODUCT USED FOR UNKNOWN INDICATION
     Route: 048
     Dates: end: 20130303
  5. TRAMADOL [Suspect]
     Indication: PRODUCT USED FOR UNKNOWN INDICATION
     Route: 065
     Dates: end: 20130302
  6. LAROXYL [Suspect]
     Indication: PRODUCT USED FOR UNKNOWN INDICATION
     Route: 048
     Dates: end: 20130301
  7. LAROXYL [Suspect]
     Indication: PRODUCT USED FOR UNKNOWN INDICATION
     Route: 048
  8. COVERSYL [Suspect]
     Indication: PRODUCT USED FOR UNKNOWN INDICATION
     Route: 048
     Dates: end: 20130303
  9. COVERSYL [Suspect]
     Indication: PRODUCT USED FOR UNKNOWN INDICATION
     Route: 048
  10. NEURONTIN [Suspect]
     Indication: PRODUCT USED FOR UNKNOWN INDICATION
     Route: 048
  11. OXEOL [Concomitant]
  12. TARDYFERON [Concomitant]
     Dosage: STRENGTH: 80 MG
  13. DIFFU K [Concomitant]
     Dosage: STRENGTH: 600 MG
  14. HEMIGOXINE NATIVELLE [Concomitant]
     Dosage: STRENGTH: 0.125 MG
  15. DEBRIDAT [Concomitant]
  16. FORLAX [Concomitant]
  17. AUGMENTIN [Concomitant]

REACTIONS (7)
  - Fall [Recovered/Resolved]
  - Dehydration [Recovered/Resolved]
  - Kidney infection [Recovered/Resolved]
  - Rhabdomyolysis [Recovered/Resolved]
  - Urinary retention [Recovered/Resolved]
  - Renal failure chronic [Recovered/Resolved]
  - Confusional state [Recovered/Resolved]
